FAERS Safety Report 19835323 (Version 1)
Quarter: 2021Q3

REPORT INFORMATION
  Report Type: Spontaneous
  Country: US (occurrence: US)
  Receive Date: 20210916
  Receipt Date: 20210916
  Transmission Date: 20211014
  Serious: Yes (Other)
  Sender: FDA-Public Use
  Company Number: US-SUN PHARMACEUTICAL INDUSTRIES LTD-2021R1-287178

PATIENT
  Sex: Female

DRUGS (1)
  1. LEVULAN KERASTICK [Suspect]
     Active Substance: AMINOLEVULINIC ACID HYDROCHLORIDE
     Indication: SKIN LESION
     Dosage: UNK
     Route: 065

REACTIONS (5)
  - Eye irritation [Recovered/Resolved]
  - Chapped lips [Not Recovered/Not Resolved]
  - Precancerous condition [Unknown]
  - Lip dry [Unknown]
  - Photosensitivity reaction [Not Recovered/Not Resolved]
